FAERS Safety Report 9804431 (Version 1)
Quarter: 2014Q1

REPORT INFORMATION
  Report Type: Spontaneous
  Country: US (occurrence: US)
  Receive Date: 20140108
  Receipt Date: 20140108
  Transmission Date: 20141002
  Serious: Yes (Death, Hospitalization)
  Sender: FDA-Public Use
  Company Number: PHHY2014US001050

PATIENT
  Sex: 0

DRUGS (14)
  1. DAPTOMYCIN [Suspect]
     Indication: DEVICE RELATED INFECTION
     Dosage: 6 MG/KG, QD, DAY 4 TO DAY 10
  2. DAPTOMYCIN [Suspect]
     Dosage: 8 MG/KG, QD, DAY 11 TO DAY 17
  3. DAPTOMYCIN [Suspect]
     Dosage: 12 MG/KG, QD, DAY 18 AND 19
  4. VANCOMYCIN [Suspect]
     Indication: DEVICE RELATED INFECTION
     Dosage: 15 MG/KG, Q12H
  5. ASPIRIN [Concomitant]
  6. FUROSEMIDE [Concomitant]
  7. CARVEDILOL [Concomitant]
  8. WARFARIN [Concomitant]
  9. LISINOPRIL [Concomitant]
  10. TELAVANCIN [Concomitant]
  11. TRIMETHOPRIM SULFAMETHOXAZOLE [Concomitant]
  12. PREDNISONE [Concomitant]
  13. TACROLIMUS [Concomitant]
  14. LINEZOLID [Concomitant]

REACTIONS (4)
  - Peritoneal haemorrhage [Fatal]
  - Staphylococcal bacteraemia [Unknown]
  - Mediastinal abscess [Unknown]
  - Pathogen resistance [Unknown]
